FAERS Safety Report 9030474 (Version 1)
Quarter: 2013Q1

REPORT INFORMATION
  Report Type: Report from Study
  Country: CA (occurrence: CA)
  Receive Date: 20130122
  Receipt Date: 20130122
  Transmission Date: 20140127
  Serious: Yes (Hospitalization, Other)
  Sender: FDA-Public Use
  Company Number: CA-JNJFOC-20130107187

PATIENT
  Sex: Male
  Weight: 81 kg

DRUGS (12)
  1. REMICADE [Suspect]
     Indication: CROHN^S DISEASE
     Route: 042
     Dates: start: 20080508
  2. ALTACE [Concomitant]
     Route: 065
  3. CRESTOR [Concomitant]
     Route: 065
  4. TARGIN [Concomitant]
     Route: 065
  5. MORPHINE [Concomitant]
     Route: 065
  6. IMURAN [Concomitant]
     Route: 065
  7. KETOCONAZOLE [Concomitant]
     Route: 065
  8. METFORMIN [Concomitant]
     Route: 065
  9. GEN-GLYBE [Concomitant]
     Route: 065
  10. ZOPICLONE [Concomitant]
     Route: 065
  11. RABEPRAZOLE [Concomitant]
     Route: 065
  12. CITALOPRAM [Concomitant]
     Route: 065

REACTIONS (1)
  - Malignant melanoma [Recovered/Resolved]
